FAERS Safety Report 4587999-8 (Version None)
Quarter: 2005Q1

REPORT INFORMATION
  Report Type: 
  Country: None (occurrence: None)
  Receive Date: 20050215
  Receipt Date: 20030613
  Transmission Date: 20050727
  Serious: Yes (Other)
  Sender: FDA-Public Use
  Company Number: 173780

PATIENT
  Age: 35 Year
  Sex: Female
  Weight: 58.0604 kg

DRUGS (4)
  1. AVONEX [Suspect]
     Indication: MULTIPLE SCLEROSIS
     Dosage: 30 UG;QW;IM
     Route: 030
     Dates: start: 20000301
  2. PROZAC [Concomitant]
  3. MULTIPLE VITAMIN [Concomitant]
  4. CALCIUM GLUCONATE [Concomitant]

REACTIONS (6)
  - ABDOMINAL DISTENSION [None]
  - EAR PAIN [None]
  - HEART SOUNDS ABNORMAL [None]
  - PHARYNGOLARYNGEAL PAIN [None]
  - UPPER RESPIRATORY TRACT INFECTION [None]
  - WEIGHT INCREASED [None]
